FAERS Safety Report 25948095 (Version 1)
Quarter: 2025Q4

REPORT INFORMATION
  Report Type: Spontaneous
  Country: GB (occurrence: GB)
  Receive Date: 20251022
  Receipt Date: 20251022
  Transmission Date: 20260118
  Serious: Yes (Death)
  Sender: STEMLINE THERAPEUTICS
  Company Number: GB-STEMLINE THERAPEUTICS B.V.-2025-STML-GB003574

PATIENT

DRUGS (1)
  1. ELACESTRANT [Suspect]
     Active Substance: ELACESTRANT
     Indication: Product used for unknown indication
     Dosage: UNK (2 CYCLES)
     Route: 065

REACTIONS (3)
  - Malignant neoplasm progression [Fatal]
  - Fatigue [Unknown]
  - Nausea [Unknown]
